FAERS Safety Report 5941852-3 (Version None)
Quarter: 2008Q4

REPORT INFORMATION
  Report Type: 
  Country: None (occurrence: None)
  Receive Date: 20081105
  Receipt Date: 20081027
  Transmission Date: 20090506
  Serious: Yes (Hospitalization, Other)
  Sender: FDA-Public Use
  Company Number: US-AVENTIS-200811424US

PATIENT
  Sex: Female
  Weight: 78 kg

DRUGS (12)
  1. KETEK [Suspect]
     Dates: start: 20060301
  2. ATACAND [Suspect]
     Indication: HYPERTENSION
     Route: 048
  3. PREVACID [Concomitant]
     Dosage: DOSE: UNK
  4. PHENOBARBITAL TAB [Concomitant]
     Dates: end: 20060401
  5. ASPIRIN [Concomitant]
     Dosage: DOSE: UNK
  6. MUCINEX [Concomitant]
     Route: 048
  7. CALCIUM [Concomitant]
     Dosage: DOSE: UNK
  8. VIT D [Concomitant]
     Dosage: DOSE: UNK
  9. VITAMIN E [Concomitant]
     Dosage: DOSE: UNK
  10. SINGULAIR [Concomitant]
     Dosage: DOSE: UNK
  11. PAXIL [Concomitant]
     Dosage: DOSE: UNK
  12. MULTI-VITAMINS [Concomitant]
     Dosage: DOSE: UNK

REACTIONS (31)
  - ABDOMINAL DISCOMFORT [None]
  - ABDOMINAL DISTENSION [None]
  - ABDOMINAL PAIN UPPER [None]
  - ASCITES [None]
  - ASTHENIA [None]
  - AUTOIMMUNE HEPATITIS [None]
  - BALANCE DISORDER [None]
  - BLOOD BILIRUBIN INCREASED [None]
  - BLOOD CREATININE INCREASED [None]
  - BLOOD LACTATE DEHYDROGENASE INCREASED [None]
  - BLOOD UREA INCREASED [None]
  - COAGULOPATHY [None]
  - COMPLICATIONS OF TRANSPLANTED LIVER [None]
  - DEHYDRATION [None]
  - DYSPNOEA [None]
  - ESCHERICHIA URINARY TRACT INFECTION [None]
  - FATIGUE [None]
  - GAIT DISTURBANCE [None]
  - HEPATIC FAILURE [None]
  - HEPATIC INFARCTION [None]
  - HYPOGLYCAEMIA [None]
  - JAUNDICE [None]
  - LACTOBACILLUS INFECTION [None]
  - LETHARGY [None]
  - LIVER FUNCTION TEST ABNORMAL [None]
  - LYMPHADENOPATHY [None]
  - MALAISE [None]
  - MENTAL STATUS CHANGES [None]
  - MYOCLONUS [None]
  - PLEURAL EFFUSION [None]
  - URINARY TRACT INFECTION [None]
